FAERS Safety Report 10023544 (Version 1)
Quarter: 2014Q1

REPORT INFORMATION
  Report Type: Spontaneous
  Country: JP (occurrence: JP)
  Receive Date: 20140320
  Receipt Date: 20140320
  Transmission Date: 20141002
  Serious: Yes (Hospitalization, Other)
  Sender: FDA-Public Use
  Company Number: JP-JNJFOC-20140307743

PATIENT
  Age: 73 Year
  Sex: Female

DRUGS (3)
  1. FLORID GEL 2% [Suspect]
     Route: 049
  2. FLORID GEL 2% [Suspect]
     Indication: PRODUCT USED FOR UNKNOWN INDICATION
     Route: 049
     Dates: start: 201206, end: 201206
  3. WARFARIN [Interacting]
     Indication: PRODUCT USED FOR UNKNOWN INDICATION
     Route: 048
     Dates: start: 201206, end: 201206

REACTIONS (2)
  - Haemorrhage subcutaneous [Unknown]
  - Drug interaction [Unknown]
